FAERS Safety Report 25520393 (Version 1)
Quarter: 2025Q3

REPORT INFORMATION
  Report Type: Spontaneous
  Country: EU (occurrence: EU)
  Receive Date: 20250704
  Receipt Date: 20250704
  Transmission Date: 20251020
  Serious: Yes (Other)
  Sender: ORGANON
  Company Number: EU-ORGANON-O2302ITA001838

PATIENT
  Sex: Male

DRUGS (1)
  1. PROPECIA [Suspect]
     Active Substance: FINASTERIDE
     Indication: Alopecia
     Dosage: DAILY INTAKE OF 1 TABLET OF PROPECIA, 1 MG/DAY
     Route: 048
     Dates: start: 2000, end: 201801

REACTIONS (4)
  - Retinal degeneration [Unknown]
  - Breast cancer male [Recovered/Resolved]
  - Paget^s disease of nipple [Recovered/Resolved]
  - Emotional distress [Unknown]

NARRATIVE: CASE EVENT DATE: 20170101
